FAERS Safety Report 11204847 (Version 1)
Quarter: 2015Q2

REPORT INFORMATION
  Report Type: Spontaneous
  Country: BR (occurrence: BR)
  Receive Date: 20150622
  Receipt Date: 20150622
  Transmission Date: 20150821
  Serious: Yes (Hospitalization, Other)
  Sender: FDA-Public Use
  Company Number: BR-ROCHE-1592886

PATIENT
  Age: 19 Year
  Sex: Male
  Weight: 45 kg

DRUGS (6)
  1. LAMOTRIGINE. [Concomitant]
     Active Substance: LAMOTRIGINE
  2. AMOXICILLIN. [Suspect]
     Active Substance: AMOXICILLIN
     Indication: LENNOX-GASTAUT SYNDROME
     Route: 065
  3. RIVOTRIL [Suspect]
     Active Substance: CLONAZEPAM
     Indication: LENNOX-GASTAUT SYNDROME
     Route: 048
  4. FOLIC ACID. [Concomitant]
     Active Substance: FOLIC ACID
  5. METRONIDAZOLE. [Suspect]
     Active Substance: METRONIDAZOLE
     Indication: LENNOX-GASTAUT SYNDROME
     Route: 065
  6. VALPROIC ACID. [Concomitant]
     Active Substance: VALPROIC ACID

REACTIONS (4)
  - Fear [Unknown]
  - Abnormal faeces [Unknown]
  - Infectious colitis [Unknown]
  - Lennox-Gastaut syndrome [Unknown]

NARRATIVE: CASE EVENT DATE: 201506
